FAERS Safety Report 15697642 (Version 1)
Quarter: 2018Q4

REPORT INFORMATION
  Report Type: Report from Study
  Country: US (occurrence: US)
  Receive Date: 20181207
  Receipt Date: 20181207
  Transmission Date: 20190205
  Serious: Yes (Other)
  Sender: FDA-Public Use
  Company Number: US-AMGEN-USASL2018147678

PATIENT
  Age: 39 Year
  Sex: Female

DRUGS (1)
  1. ENBREL [Suspect]
     Active Substance: ETANERCEPT
     Indication: RHEUMATOID ARTHRITIS
     Dosage: 50 MG, QWK
     Route: 065

REACTIONS (9)
  - Upper respiratory tract infection [Recovered/Resolved]
  - Injection site erythema [Unknown]
  - Bronchitis [Unknown]
  - Injection site pruritus [Unknown]
  - Fatigue [Unknown]
  - Feeling abnormal [Unknown]
  - Sinusitis [Recovered/Resolved]
  - Pyrexia [Recovered/Resolved]
  - Systemic lupus erythematosus [Unknown]

NARRATIVE: CASE EVENT DATE: 2018
